FAERS Safety Report 5613588-X (Version None)
Quarter: 2008Q1

REPORT INFORMATION
  Report Type: 
  Country: None (occurrence: None)
  Receive Date: 20080205
  Receipt Date: 20080129
  Transmission Date: 20080703
  Serious: Yes (Hospitalization)
  Sender: FDA-Public Use
  Company Number: DE-BAYER-200812194GPV

PATIENT
  Age: 22 Year
  Sex: Female
  Weight: 72 kg

DRUGS (2)
  1. MAGNEVIST [Suspect]
     Indication: NUCLEAR MAGNETIC RESONANCE IMAGING
     Dosage: UNIT DOSE: 14 ML
     Route: 042
     Dates: start: 20080124, end: 20080124
  2. ANTIHYPERTENSIVE AGENT [Concomitant]
     Route: 065

REACTIONS (4)
  - DIZZINESS [None]
  - NAUSEA [None]
  - RASH [None]
  - THROAT TIGHTNESS [None]
